FAERS Safety Report 19002402 (Version 7)
Quarter: 2023Q4

REPORT INFORMATION
  Report Type: Report from Study
  Country: US (occurrence: US)
  Receive Date: 20210312
  Receipt Date: 20231229
  Transmission Date: 20240110
  Serious: Yes (Hospitalization)
  Sender: FDA-Public Use
  Company Number: US-BAUSCH-BL-2021-008382

PATIENT
  Age: 62 Year
  Sex: Male
  Weight: 134.02 kg

DRUGS (16)
  1. XIFAXAN [Suspect]
     Active Substance: RIFAXIMIN
     Indication: Hepatic cirrhosis
     Dosage: STARTED APPROX. 3 TO 4 YEARS AGO
     Route: 048
     Dates: end: 20210307
  2. XIFAXAN [Suspect]
     Active Substance: RIFAXIMIN
     Indication: Hepatic encephalopathy
     Route: 048
     Dates: end: 2022
  3. XIFAXAN [Suspect]
     Active Substance: RIFAXIMIN
     Indication: Metabolic encephalopathy
     Route: 048
     Dates: start: 2022, end: 202212
  4. XIFAXAN [Suspect]
     Active Substance: RIFAXIMIN
     Route: 048
     Dates: end: 20230820
  5. PROGRAF [Concomitant]
     Active Substance: TACROLIMUS
     Indication: Product used for unknown indication
     Dosage: 1 MG IN MORNING AND 0.5 MG ANT NIGHT
     Route: 048
  6. ACTIGALL [Concomitant]
     Active Substance: URSODIOL
     Indication: Product used for unknown indication
     Route: 048
  7. NOVOLOG [Concomitant]
     Active Substance: INSULIN ASPART
     Indication: Product used for unknown indication
     Dosage: 100 UNIT/ML (3 ML INSULIN PEN), INJECT 15-25 UNITS UNDER THE SKIN WITH MEALS
     Route: 058
  8. TRESIBA [Concomitant]
     Active Substance: INSULIN DEGLUDEC
     Indication: Product used for unknown indication
     Dosage: 200 UNIT/ML (3 ML PEN), INJECT 45 UNITS UNDER THE SKIN EVERY MORNING
     Route: 058
  9. MYCOSTATIN [Concomitant]
     Active Substance: NYSTATIN
     Indication: Product used for unknown indication
     Dosage: 100,000 UNIT/ML, SWISH IN MOUTH
     Route: 048
  10. NEURONTIN [Concomitant]
     Active Substance: GABAPENTIN
     Indication: Product used for unknown indication
     Dosage: 100 MG IN THE MORNING, AFTERNOON AND 200 MG IN EVENING
     Route: 048
  11. VITAMIN C [Concomitant]
     Active Substance: ASCORBIC ACID
     Indication: Product used for unknown indication
     Route: 048
  12. CITRACAL PLUS D [Concomitant]
     Indication: Product used for unknown indication
     Route: 048
  13. FLORINEF ACETATE [Concomitant]
     Active Substance: FLUDROCORTISONE ACETATE
     Indication: Product used for unknown indication
     Route: 048
  14. SYNTHROID [Concomitant]
     Active Substance: LEVOTHYROXINE SODIUM
     Indication: Product used for unknown indication
     Route: 048
  15. DIALYVITE WITH ZINC [Concomitant]
     Active Substance: ASCORBIC ACID\BIOTIN\CALCIUM PANTOTHENATE\COBALAMIN\FOLIC ACID\NIACINAMIDE\PYRIDOXINE HYDROCHLORIDE\
     Indication: Product used for unknown indication
     Dosage: DIALYVITE 800 WITH ZINC 15
     Route: 048
  16. ULTRAM [Concomitant]
     Active Substance: TRAMADOL HYDROCHLORIDE
     Indication: Pain
     Dosage: ACUTE/MODERATE PAIN
     Route: 048

REACTIONS (8)
  - Hepatic encephalopathy [Recovered/Resolved]
  - Disease recurrence [Recovered/Resolved]
  - Urinary tract infection [Unknown]
  - Blood sodium increased [Unknown]
  - Blood alkaline phosphatase increased [Unknown]
  - Product use issue [Unknown]
  - Inability to afford medication [Unknown]
  - Insurance issue [Unknown]

NARRATIVE: CASE EVENT DATE: 20210307
